FAERS Safety Report 18957591 (Version 1)
Quarter: 2021Q1

REPORT INFORMATION
  Report Type: Spontaneous
  Country: US (occurrence: US)
  Receive Date: 20210301
  Receipt Date: 20210301
  Transmission Date: 20210420
  Serious: Yes (Other)
  Sender: FDA-Public Use
  Company Number: None

PATIENT
  Age: 71 Year
  Sex: Male
  Weight: 95.7 kg

DRUGS (1)
  1. VANCOMYCIN 10GM FRESENIUS KABI [Suspect]
     Active Substance: VANCOMYCIN
     Indication: ENDOCARDITIS
     Dosage: ?          OTHER FREQUENCY:Q24;OTHER ROUTE:IV?
     Route: 042
     Dates: start: 20210212, end: 20210226

REACTIONS (1)
  - Rash [None]

NARRATIVE: CASE EVENT DATE: 20210226
